FAERS Safety Report 6058485-3 (Version None)
Quarter: 2009Q1

REPORT INFORMATION
  Report Type: 
  Country: None (occurrence: None)
  Receive Date: 20090130
  Receipt Date: 20090119
  Transmission Date: 20090719
  Serious: Yes (Other)
  Sender: FDA-Public Use
  Company Number: PHEH2009US00979

PATIENT
  Sex: Female

DRUGS (3)
  1. ENABLEX [Suspect]
     Dosage: UNK
  2. DETROL [Concomitant]
  3. HYDROCORTISONE 10MG TAB [Concomitant]

REACTIONS (8)
  - ABDOMINAL PAIN [None]
  - CONSTIPATION [None]
  - FATIGUE [None]
  - GLAUCOMA [None]
  - LACRIMATION INCREASED [None]
  - MUSCLE SPASMS [None]
  - SINUS DISORDER [None]
  - SOMNOLENCE [None]
